FAERS Safety Report 20472324 (Version 1)
Quarter: 2022Q1

REPORT INFORMATION
  Report Type: Spontaneous
  Country: US (occurrence: US)
  Receive Date: 20220215
  Receipt Date: 20220215
  Transmission Date: 20220423
  Serious: No
  Sender: FDA-Public Use
  Company Number: US-DSJP-DSU-2022-105164AA

PATIENT
  Age: 75 Year
  Sex: Female

DRUGS (2)
  1. EFFIENT [Suspect]
     Active Substance: PRASUGREL HYDROCHLORIDE
     Indication: Anticoagulant therapy
     Dosage: UNK
     Route: 065
     Dates: end: 202112
  2. PRASUGREL [Suspect]
     Active Substance: PRASUGREL
     Indication: Product used for unknown indication
     Dosage: UNK
     Route: 065
     Dates: start: 202112, end: 202112

REACTIONS (2)
  - Dizziness [Unknown]
  - Pain in extremity [Unknown]
